FAERS Safety Report 11137521 (Version 3)
Quarter: 2015Q2

REPORT INFORMATION
  Report Type: Spontaneous
  Country: BR (occurrence: BR)
  Receive Date: 20150526
  Receipt Date: 20150603
  Transmission Date: 20150821
  Serious: Yes (Life-Threatening, Hospitalization, Other)
  Sender: FDA-Public Use
  Company Number: BR-ELI_LILLY_AND_COMPANY-BR201505006792

PATIENT
  Age: 64 Year
  Sex: Male
  Weight: 83 kg

DRUGS (8)
  1. URSACOL [Concomitant]
     Active Substance: URSODIOL
     Dosage: UNK, UNKNOWN
     Route: 065
  2. ACITAC [Concomitant]
     Indication: ANXIETY
     Dosage: UNK, UNKNOWN
     Route: 065
  3. CIALIS [Suspect]
     Active Substance: TADALAFIL
     Indication: ERECTILE DYSFUNCTION
     Dosage: 1 DF, QD
     Route: 048
     Dates: start: 20140205
  4. CIALIS [Suspect]
     Active Substance: TADALAFIL
     Indication: BENIGN PROSTATIC HYPERPLASIA
  5. VYTORIN [Concomitant]
     Active Substance: EZETIMIBE\SIMVASTATIN
     Indication: BLOOD CHOLESTEROL
     Dosage: UNK, UNKNOWN
     Route: 065
  6. NOVANOX [Concomitant]
     Indication: BLOOD PRESSURE
     Dosage: UNK, UNKNOWN
     Route: 065
  7. DIAMICRON [Concomitant]
     Active Substance: GLICLAZIDE
     Indication: DIABETES MELLITUS
     Dosage: UNK, UNKNOWN
     Route: 065
  8. DIGESAN                            /00576701/ [Concomitant]
     Indication: GASTRIC DISORDER
     Dosage: UNK, UNKNOWN
     Route: 065

REACTIONS (8)
  - Hiatus hernia [Unknown]
  - Malaise [Unknown]
  - Injury [Unknown]
  - Cough [Not Recovered/Not Resolved]
  - Pleural effusion [Recovered/Resolved]
  - Fatigue [Unknown]
  - Drug ineffective [Unknown]
  - Lactase deficiency [Unknown]

NARRATIVE: CASE EVENT DATE: 201410
